FAERS Safety Report 10018681 (Version 2)
Quarter: 2014Q2

REPORT INFORMATION
  Report Type: Spontaneous
  Country: US (occurrence: US)
  Receive Date: 20140318
  Receipt Date: 20140404
  Transmission Date: 20141212
  Serious: Yes (Other)
  Sender: FDA-Public Use
  Company Number: US-ACTELION-A-NJ2014-95989

PATIENT
  Age: 46 Year
  Sex: Female

DRUGS (1)
  1. VELETRI [Suspect]
     Indication: PULMONARY ARTERIAL HYPERTENSION
     Dosage: 1.5 NG/KG, PER MIN
     Route: 042
     Dates: start: 20130807

REACTIONS (2)
  - Systemic lupus erythematosus [Recovering/Resolving]
  - Pain in jaw [Recovering/Resolving]
